FAERS Safety Report 7705877-X (Version None)
Quarter: 2011Q3

REPORT INFORMATION
  Report Type: 
  Country: None (occurrence: None)
  Receive Date: 20110824
  Receipt Date: 20110810
  Transmission Date: 20111222
  Serious: Yes (Other)
  Sender: FDA-Public Use
  Company Number: JP-MYLANLABS-2011S1016843

PATIENT
  Age: 14 Year
  Sex: Female

DRUGS (6)
  1. CYCLOPHOSPHAMIDE [Suspect]
     Indication: MEDULLOBLASTOMA
     Dosage: HIGH-DOSE
     Route: 065
     Dates: start: 20090101, end: 20091001
  2. DEXAMETHASONE [Suspect]
     Indication: MEDULLOBLASTOMA
     Route: 037
     Dates: start: 20090101, end: 20091001
  3. CISPLATIN [Suspect]
     Indication: MEDULLOBLASTOMA
     Route: 065
     Dates: start: 20090101, end: 20091001
  4. VINCRISTINE [Suspect]
     Indication: MEDULLOBLASTOMA
     Route: 065
     Dates: start: 20090101, end: 20091001
  5. ETOPOSIDE [Suspect]
     Indication: MEDULLOBLASTOMA
     Route: 065
     Dates: start: 20090101, end: 20091001
  6. METHOTREXATE [Suspect]
     Indication: MEDULLOBLASTOMA
     Route: 037
     Dates: start: 20090101, end: 20091001

REACTIONS (4)
  - EPSTEIN-BARR VIRUS ASSOCIATED LYMPHOPROLIFERATIVE DISORDER [None]
  - CYTOMEGALOVIRUS INFECTION [None]
  - ENCEPHALITIS VIRAL [None]
  - HERPES ZOSTER [None]
